FAERS Safety Report 22378240 (Version 1)
Quarter: 2023Q2

REPORT INFORMATION
  Report Type: Spontaneous
  Country: BR (occurrence: BR)
  Receive Date: 20230529
  Receipt Date: 20230529
  Transmission Date: 20230721
  Serious: Yes (Other)
  Sender: FDA-Public Use
  Company Number: BR-AUROBINDO-AUR-APL-2023-039060

PATIENT
  Age: 40 Year
  Sex: Female

DRUGS (2)
  1. BELEODAQ [Suspect]
     Active Substance: BELINOSTAT
     Indication: Human T-cell lymphotropic virus infection
     Dosage: UNK, CYCLICAL (3 CYCLES OF TREATMENT WITH THE DRUG BELEODAQ (BELINOSTAT), HAD A DROP OUT DUE TO DISE
     Route: 065
  2. BELEODAQ [Suspect]
     Active Substance: BELINOSTAT
     Indication: T-cell lymphoma

REACTIONS (1)
  - Disease progression [Unknown]
